FAERS Safety Report 4519895-6 (Version None)
Quarter: 2004Q4

REPORT INFORMATION
  Report Type: 
  Country: None (occurrence: None)
  Receive Date: 20041202
  Receipt Date: 20041202
  Transmission Date: 20050328
  Serious: Yes (Hospitalization)
  Sender: FDA-Public Use
  Company Number: None

PATIENT
  Sex: Male

DRUGS (10)
  1. WARFARIN SODIUM [Suspect]
     Indication: ATRIAL FIBRILLATION
     Dosage: 3 MG  DAILY ORAL
     Route: 048
  2. APAP TAB [Concomitant]
  3. OMEPRAZOLE [Concomitant]
  4. MEGESTROL [Concomitant]
  5. LEVOTHYROXINE SODIUM [Concomitant]
  6. DIGOXIN [Concomitant]
  7. CITALOPRAM [Concomitant]
  8. BISACODYL [Concomitant]
  9. COMBIVENT [Concomitant]
  10. RISPERIDONE [Concomitant]

REACTIONS (3)
  - HAEMATURIA [None]
  - INTERNATIONAL NORMALISED RATIO INCREASED [None]
  - URINARY TRACT INFECTION [None]
